FAERS Safety Report 21350482 (Version 2)
Quarter: 2022Q4

REPORT INFORMATION
  Report Type: Spontaneous
  Country: ES (occurrence: ES)
  Receive Date: 20220919
  Receipt Date: 20221025
  Transmission Date: 20230113
  Serious: Yes (Life-Threatening, Other)
  Sender: FDA-Public Use
  Company Number: None

PATIENT
  Age: 38 Year
  Sex: Male
  Weight: 61 kg

DRUGS (33)
  1. PIPERACILLIN SODIUM\TAZOBACTAM SODIUM [Suspect]
     Active Substance: PIPERACILLIN SODIUM\TAZOBACTAM SODIUM
     Indication: Product used for unknown indication
     Dosage: TID
     Dates: start: 20010321, end: 20010325
  2. PIPERACILLIN SODIUM\TAZOBACTAM SODIUM [Suspect]
     Active Substance: PIPERACILLIN SODIUM\TAZOBACTAM SODIUM
     Dosage: 40 MG, Q12H; IV NOS 9 DF, QD; IV BOLUS 3 DF, QD; IV BOLUS
  3. PIPERACILLIN SODIUM\TAZOBACTAM SODIUM [Suspect]
     Active Substance: PIPERACILLIN SODIUM\TAZOBACTAM SODIUM
     Dosage: QD
     Dates: end: 20090329
  4. PIPERACILLIN SODIUM\TAZOBACTAM SODIUM [Suspect]
     Active Substance: PIPERACILLIN SODIUM\TAZOBACTAM SODIUM
     Dosage: #2
  5. PIPERACILLIN SODIUM\TAZOBACTAM SODIUM [Suspect]
     Active Substance: PIPERACILLIN SODIUM\TAZOBACTAM SODIUM
     Dosage: #1 #3 ) PIPERACILLIN SODIUM/TAZOBACTAM
  6. PIPERACILLIN SODIUM\TAZOBACTAM SODIUM [Suspect]
     Active Substance: PIPERACILLIN SODIUM\TAZOBACTAM SODIUM
     Dosage: 1 DF, TID
  7. PIPERACILLIN SODIUM\TAZOBACTAM SODIUM [Suspect]
     Active Substance: PIPERACILLIN SODIUM\TAZOBACTAM SODIUM
     Indication: Product used for unknown indication
     Dosage: || DOSE UNIT FREQUENCY: 3 DF-DOSAGE FORMS || DOSE PER INTAKE: 1 DF-DOSAGE FORMS || NUMBER OF OUTLETS
     Route: 042
     Dates: start: 20010321, end: 20010329
  8. SODIUM BICARBONATE [Suspect]
     Active Substance: SODIUM BICARBONATE
     Indication: Product used for unknown indication
     Dosage: TID
     Dates: start: 20010321, end: 20010325
  9. KETOROLAC TROMETHAMINE [Suspect]
     Active Substance: KETOROLAC TROMETHAMINE
     Indication: Product used for unknown indication
     Dosage: || FREQUENCY UNIT: 1 DAY?ROA-20045000
     Route: 042
     Dates: start: 20010321, end: 20010325
  10. METAMIZOLE MAGNESIUM [Suspect]
     Active Substance: METAMIZOLE MAGNESIUM
     Indication: Product used for unknown indication
     Dosage: ROA-20045000
     Route: 042
     Dates: start: 20010325, end: 20010328
  11. METHYLPREDNISOLONE [Suspect]
     Active Substance: METHYLPREDNISOLONE
     Indication: Product used for unknown indication
     Dosage: || DOSAGE UNIT FREQUENCY: 80 MG-MILLIGRAMS || DOSE PER INTAKE: 40 MG-MILLIGRAMS || NUMBER OF OUTLETS
     Dates: start: 20010321, end: 20010325
  12. METAMIZOLE MAGNESIUM [Suspect]
     Active Substance: METAMIZOLE MAGNESIUM
     Indication: Product used for unknown indication
     Dosage: ROA-20045000
     Route: 042
     Dates: start: 20010325, end: 20010325
  13. METAMIZOLE MAGNESIUM [Suspect]
     Active Substance: METAMIZOLE MAGNESIUM
     Route: 042
     Dates: start: 20010328, end: 20010328
  14. METHYLPREDNISOLONE [Suspect]
     Active Substance: METHYLPREDNISOLONE
     Indication: Product used for unknown indication
     Dosage: ROUTE: OTHER
     Dates: start: 20010321, end: 20010325
  15. SODIUM [Suspect]
     Active Substance: SODIUM
     Indication: Product used for unknown indication
     Dosage: QD
     Dates: end: 20090329
  16. SODIUM [Suspect]
     Active Substance: SODIUM
     Dosage: #1 #3 ) PIPERACILLIN SODIUM/TAZOBACTAM
  17. SODIUM [Suspect]
     Active Substance: SODIUM
     Dosage: 1 DF, TID
  18. SODIUM [Suspect]
     Active Substance: SODIUM
     Dosage: 40 MG, Q12H; IV NOS 9 DF, QD; IV BOLUS 3 DF, QD; IV BOLUS
  19. SODIUM [Suspect]
     Active Substance: SODIUM
     Dosage: #2
  20. SODIUM [Suspect]
     Active Substance: SODIUM
     Dosage: TID
     Dates: start: 20010321, end: 20010325
  21. KETOROLAC TROMETHAMINE [Suspect]
     Active Substance: KETOROLAC TROMETHAMINE
     Indication: Product used for unknown indication
     Dosage: ROUTE: OTHER
     Dates: start: 20010321, end: 20010325
  22. PIPERACILLIN SODIUM\TAZOBACTAM SODIUM [Suspect]
     Active Substance: PIPERACILLIN SODIUM\TAZOBACTAM SODIUM
     Indication: Product used for unknown indication
     Dosage: 9 DOSAGE FORM, FORM STRENGTH: 4/0,5 G?ROA-20045000
     Route: 042
     Dates: start: 20010321, end: 20010329
  23. PIPERACILLIN SODIUM\TAZOBACTAM SODIUM [Suspect]
     Active Substance: PIPERACILLIN SODIUM\TAZOBACTAM SODIUM
     Dosage: 3 DOSAGE FORMS?STRENGTH: 4/0.5 G?ROA-20045000
     Route: 042
     Dates: start: 20010321, end: 20010329
  24. METAMIZOLE SODIUM [Suspect]
     Active Substance: METAMIZOLE SODIUM
     Indication: Product used for unknown indication
     Dosage: #1 #1 ) LISALGIL (METAMIZOLE MAGNESIUM) SOLUTION FOR INJECTION, 0.4 G/ML; REGIMEN #2
  25. METAMIZOLE SODIUM [Suspect]
     Active Substance: METAMIZOLE SODIUM
     Dosage: 3 G, QD; IV NOS 0.33 G, Q8H; IV NOS
     Dates: start: 20010325, end: 20010328
  26. METAMIZOLE SODIUM [Suspect]
     Active Substance: METAMIZOLE SODIUM
     Dosage: QD
  27. OMEPRAZOLE [Suspect]
     Active Substance: OMEPRAZOLE
     Indication: Product used for unknown indication
     Dates: start: 20010321
  28. KETOROLACO TROMETAMOL (2108TR) [Concomitant]
     Indication: Product used for unknown indication
     Dosage: QD
     Dates: start: 20010321, end: 20010325
  29. OMEPRAZOLE [Concomitant]
     Active Substance: OMEPRAZOLE
     Indication: Product used for unknown indication
     Dates: start: 20010321
  30. KETOROLAC [Concomitant]
     Active Substance: KETOROLAC TROMETHAMINE
     Indication: Product used for unknown indication
     Dosage: #2
  31. KETOROLAC [Concomitant]
     Active Substance: KETOROLAC TROMETHAMINE
     Dosage: QD
     Dates: start: 20010321, end: 20010325
  32. KETOROLAC [Concomitant]
     Active Substance: KETOROLAC TROMETHAMINE
     Dosage: UNK
  33. KETOROLAC [Concomitant]
     Active Substance: KETOROLAC TROMETHAMINE
     Dosage: 30 MG, QD

REACTIONS (1)
  - Agranulocytosis [Recovered/Resolved]

NARRATIVE: CASE EVENT DATE: 20010327
